FAERS Safety Report 6606690-7 (Version None)
Quarter: 2010Q1

REPORT INFORMATION
  Report Type: 
  Country: None (occurrence: None)
  Receive Date: 20100226
  Receipt Date: 20090218
  Transmission Date: 20100710
  Serious: No
  Sender: FDA-Public Use
  Company Number: US-ALLERGAN-0710997US

PATIENT
  Age: 56 Year
  Sex: Female

DRUGS (7)
  1. BOTOX COSMETIC [Suspect]
     Indication: SKIN WRINKLING
     Dosage: UNK, SINGLE
     Route: 030
     Dates: start: 20070501, end: 20070501
  2. BOTOX COSMETIC [Suspect]
     Dosage: UNK, SINGLE
     Route: 030
     Dates: start: 20050101, end: 20050101
  3. TAZORAC [Concomitant]
     Indication: ACNE
     Dosage: UNK, UNKNOWN
     Route: 061
  4. NEURONTIN [Concomitant]
     Indication: NERVE BLOCK
  5. ALDACTONE [Concomitant]
     Indication: SKIN DISORDER
  6. SUN BATH PROTECTIVE TANNING LOTION [Concomitant]
  7. ESTROGEN [Concomitant]
     Indication: ANTIANDROGEN THERAPY

REACTIONS (2)
  - ACNE [None]
  - INJECTION SITE PRURITUS [None]
